FAERS Safety Report 5077911-X (Version None)
Quarter: 2006Q3

REPORT INFORMATION
  Report Type: 
  Country: None (occurrence: None)
  Receive Date: 20060808
  Receipt Date: 20060726
  Transmission Date: 20061208
  Serious: Yes (Hospitalization)
  Sender: FDA-Public Use
  Company Number: 2006-DE-03933DE

PATIENT
  Age: 40 Year
  Sex: Female
  Weight: 50 kg

DRUGS (6)
  1. HYOSCINE HBR HYT [Suspect]
     Dosage: 200 MG (, 1 X 20 DRAGEES), PO
     Route: 048
  2. ARLEVERT (ARLEVERT) [Suspect]
     Dosage: 100 ANZ (, 1 X 100 TABLETS), PO
     Route: 048
  3. DICLOFENAC (DICLOFENAC) [Suspect]
     Dosage: 1000 MG (50 MG, 1 X 20 TABLETS), PO
     Route: 048
  4. DOLOMO (CODIPHEN /00012701/) [Suspect]
     Dosage: 3 ANZ (, 1 X 3 TABLETS), PO
     Route: 048
  5. FLUOXETINE HCL [Suspect]
     Dosage: 200 MG (20 MG, 1 X 10 TABLETS), PO
     Route: 048
  6. VOLTAREN [Suspect]
     Dosage: 1500 MG (75 MG, 1 X 20 TABLETS), PO
     Route: 048

REACTIONS (4)
  - BOWEL SOUNDS ABNORMAL [None]
  - DRUG ABUSER [None]
  - SOMNOLENCE [None]
  - SUICIDE ATTEMPT [None]
